FAERS Safety Report 5568866-X (Version None)
Quarter: 2007Q4

REPORT INFORMATION
  Report Type: 
  Country: None (occurrence: None)
  Receive Date: 20071220
  Receipt Date: 20070320
  Transmission Date: 20080405
  Serious: No
  Sender: FDA-Public Use
  Company Number: A0640136A

PATIENT
  Age: 70 Year
  Sex: Male
  Weight: 100.5 kg

DRUGS (9)
  1. AVODART [Suspect]
     Dates: start: 20070111
  2. FLOVENT [Suspect]
     Route: 055
     Dates: start: 19960101
  3. PROVIGIL [Suspect]
     Dosage: 200MG IN THE MORNING
     Route: 048
     Dates: start: 20061001
  4. FLOMAX [Suspect]
  5. COMBIVENT [Concomitant]
     Dates: start: 19960101
  6. POTASSIUM CHLORIDE [Concomitant]
     Dates: start: 20010101
  7. MAGNESIUM [Concomitant]
     Dates: start: 20020101
  8. DIOVAN [Concomitant]
     Dates: start: 20060101
  9. FORADIL [Concomitant]
     Dates: start: 20040101

REACTIONS (3)
  - MUSCLE SPASMS [None]
  - TINNITUS [None]
  - VISUAL DISTURBANCE [None]
